FAERS Safety Report 10577273 (Version 1)
Quarter: 2014Q4

REPORT INFORMATION
  Report Type: Spontaneous
  Country: BR (occurrence: BR)
  Receive Date: 20141111
  Receipt Date: 20141111
  Transmission Date: 20150529
  Serious: Yes (Hospitalization)
  Sender: FDA-Public Use
  Company Number: BR-PFIZER INC-2014306517

PATIENT
  Age: 50 Year
  Sex: Female
  Weight: 78 kg

DRUGS (4)
  1. LYRICA [Suspect]
     Active Substance: PREGABALIN
     Indication: FIBROMYALGIA
     Dosage: UNSPECIFIED DOSE, TWICE DAILY
     Route: 048
     Dates: start: 20140805
  2. IBUPROFEN. [Concomitant]
     Active Substance: IBUPROFEN
     Indication: PAIN
     Dosage: UNSPECIFIED DOSAGE, 1X/DAY
     Dates: start: 2012
  3. ATENOLOL. [Concomitant]
     Active Substance: ATENOLOL
     Indication: HYPERTENSION
     Dosage: UNK, 2X/DAY
     Dates: start: 2009
  4. MUSCULARE [Concomitant]
     Indication: MUSCLE RELAXANT THERAPY
     Dosage: UNSPECIFIED DOSAGE, 1X/DAY
     Dates: start: 2011

REACTIONS (3)
  - Musculoskeletal stiffness [Unknown]
  - Hypokinesia [Unknown]
  - Spinal disorder [Unknown]
